FAERS Safety Report 9716252 (Version 1)
Quarter: 2013Q4

REPORT INFORMATION
  Report Type: Spontaneous
  Country: US (occurrence: None)
  Receive Date: 20131126
  Receipt Date: 20131126
  Transmission Date: 20140711
  Serious: Yes (Hospitalization)
  Sender: FDA-Public Use
  Company Number: None

PATIENT
  Age: 58 Year
  Sex: Male
  Weight: 125.6 kg

DRUGS (1)
  1. MORPHINE [Suspect]
     Indication: PAIN
     Route: 048
     Dates: start: 20131122

REACTIONS (8)
  - Somnolence [None]
  - Dyspnoea [None]
  - Agitation [None]
  - Overdose [None]
  - Alcohol poisoning [None]
  - Confusional state [None]
  - Sedation [None]
  - Respiratory depression [None]
